FAERS Safety Report 11937887 (Version 1)
Quarter: 2016Q1

REPORT INFORMATION
  Report Type: Spontaneous
  Country: US (occurrence: None)
  Receive Date: 20160120
  Receipt Date: 20160120
  Transmission Date: 20160526
  Serious: No
  Sender: FDA-Public Use
  Company Number: None

PATIENT
  Age: 84 Year
  Sex: Female

DRUGS (1)
  1. LEVOTHYROXINE. [Suspect]
     Active Substance: LEVOTHYROXINE
     Indication: HYPOTHYROIDISM
     Dosage: TQP
     Route: 048
     Dates: start: 20151222, end: 20160102

REACTIONS (3)
  - Muscular weakness [None]
  - Product substitution issue [None]
  - Memory impairment [None]

NARRATIVE: CASE EVENT DATE: 20160103
